FAERS Safety Report 16578022 (Version 1)
Quarter: 2019Q3

REPORT INFORMATION
  Report Type: Spontaneous
  Country: US (occurrence: US)
  Receive Date: 20190716
  Receipt Date: 20190716
  Transmission Date: 20191004
  Serious: No
  Sender: FDA-Public Use
  Company Number: US-PFIZER INC-2019293276

PATIENT
  Age: 65 Year
  Sex: Female
  Weight: 90.26 kg

DRUGS (1)
  1. PREMARIN [Suspect]
     Active Substance: ESTROGENS, CONJUGATED
     Indication: ATROPHIC VULVOVAGINITIS
     Dosage: 1 G, 1X/DAY (30 GM - APPLY ONE GRAM VAGINALLY IN THE EVENING EACH DAY)
     Route: 067
     Dates: start: 20190702, end: 20190703

REACTIONS (3)
  - Product use issue [Unknown]
  - Vulvovaginal erythema [Recovering/Resolving]
  - Off label use [Unknown]

NARRATIVE: CASE EVENT DATE: 20190702
